FAERS Safety Report 18715263 (Version 2)
Quarter: 2022Q3

REPORT INFORMATION
  Report Type: Spontaneous
  Country: US (occurrence: US)
  Receive Date: 20210108
  Receipt Date: 20220815
  Transmission Date: 20221026
  Serious: Yes (Death, Hospitalization, Other)
  Sender: FDA-Public Use
  Company Number: US-AMGEN-USASP2021000445

PATIENT
  Age: 69 Year
  Sex: Female

DRUGS (2)
  1. CARFILZOMIB [Suspect]
     Active Substance: CARFILZOMIB
     Indication: Plasma cell myeloma
     Dosage: UNK
     Route: 065
  2. DEXAMETHASONE [Concomitant]
     Active Substance: DEXAMETHASONE
     Indication: Plasma cell myeloma
     Dosage: UNK

REACTIONS (10)
  - Hypertensive urgency [Unknown]
  - Thrombotic microangiopathy [Recovered/Resolved]
  - Cardiorenal syndrome [Unknown]
  - Cardiac amyloidosis [Unknown]
  - Cardiac failure [Fatal]
  - Influenza [Unknown]
  - Sepsis [Unknown]
  - Pneumonia [Unknown]
  - Acute kidney injury [Unknown]
  - Constipation [Unknown]
